FAERS Safety Report 4286911-9 (Version None)
Quarter: 2004Q1

REPORT INFORMATION
  Report Type: 
  Country: None (occurrence: None)
  Receive Date: 20040204
  Receipt Date: 20040122
  Transmission Date: 20041129
  Serious: Yes (Other)
  Sender: FDA-Public Use
  Company Number: US-JNJFOC-20040104576

PATIENT
  Age: 50 Year
  Sex: Male
  Weight: 78.0187 kg

DRUGS (4)
  1. REMICADE [Suspect]
     Indication: RHEUMATOID ARTHRITIS
     Dosage: 500 MG, 1 IN 1 DAY,  INTRAVENOUS
     Route: 042
     Dates: start: 20030430, end: 20030811
  2. METHOTREXATE SODIUM [Concomitant]
  3. FOLIC ACID [Concomitant]
  4. ADVIL [Concomitant]

REACTIONS (1)
  - NON-HODGKIN'S LYMPHOMA [None]
